FAERS Safety Report 5053876-1 (Version None)
Quarter: 2006Q3

REPORT INFORMATION
  Report Type: 
  Country: None (occurrence: None)
  Receive Date: 20060718
  Receipt Date: 20060707
  Transmission Date: 20061208
  Serious: Yes (Other)
  Sender: FDA-Public Use
  Company Number: US-JNJFOC-20060702215

PATIENT
  Sex: Female
  Weight: 76.2 kg

DRUGS (6)
  1. DURAGESIC-100 [Suspect]
     Route: 062
  2. DURAGESIC-100 [Suspect]
     Indication: PAIN
     Route: 062
  3. TIZANIDINE HCL [Concomitant]
     Indication: MUSCLE RELAXANT THERAPY
     Route: 048
  4. ACIPHEX [Concomitant]
     Indication: GASTRIC DISORDER
     Route: 048
  5. PEROAZEPAM [Concomitant]
     Indication: INSOMNIA
     Route: 048
  6. LIDOCAINE [Concomitant]
     Indication: PAIN MANAGEMENT
     Route: 062

REACTIONS (4)
  - CONVULSION [None]
  - INTERVERTEBRAL DISC PROTRUSION [None]
  - THERAPEUTIC RESPONSE DECREASED [None]
  - TOOTH FRACTURE [None]
